FAERS Safety Report 7186791-8 (Version None)
Quarter: 2010Q4

REPORT INFORMATION
  Report Type: 
  Country: None (occurrence: None)
  Receive Date: 20101222
  Receipt Date: 20101216
  Transmission Date: 20110411
  Serious: Yes (Other)
  Sender: FDA-Public Use
  Company Number: A0885015A

PATIENT
  Age: 74 Year
  Sex: Male
  Weight: 70 kg

DRUGS (14)
  1. VOTRIENT [Suspect]
     Indication: LUNG NEOPLASM MALIGNANT
     Dosage: 400MG TWICE PER DAY
     Route: 048
     Dates: start: 20100928
  2. VITAMIN B COMPLEX [Concomitant]
  3. DIGITEK [Concomitant]
  4. CALCITRIOL [Concomitant]
  5. HYDROXYZINE [Concomitant]
  6. FLOMAX [Concomitant]
  7. LIPITOR [Concomitant]
  8. HYDRALAZINE [Concomitant]
  9. ISOSORBIDE DINITRATE [Concomitant]
  10. DIAZEPAM [Concomitant]
  11. DILANTIN [Concomitant]
  12. MULTIPLE VITAMIN [Concomitant]
  13. PHOSLO [Concomitant]
  14. PROCRIT [Concomitant]

REACTIONS (10)
  - AGEUSIA [None]
  - ALOPECIA [None]
  - BLOOD CREATININE INCREASED [None]
  - DIZZINESS [None]
  - DYSGEUSIA [None]
  - EARLY SATIETY [None]
  - FATIGUE [None]
  - HAEMOGLOBIN INCREASED [None]
  - RENAL FAILURE CHRONIC [None]
  - THERAPEUTIC RESPONSE UNEXPECTED [None]
